FAERS Safety Report 9236006 (Version 3)
Quarter: 2013Q3

REPORT INFORMATION
  Report Type: Spontaneous
  Country: DE (occurrence: None)
  Receive Date: 20130409
  Receipt Date: 20130911
  Transmission Date: 20140515
  Serious: Yes (Other)
  Sender: FDA-Public Use
  Company Number: AEDEU201300120

PATIENT
  Age: 57 Year
  Sex: Male
  Weight: 105 kg

DRUGS (4)
  1. GAMUNEX [Suspect]
     Indication: CHRONIC INFLAMMATORY DEMYELINATING POLYRADICULONEUROPATHY
     Route: 042
     Dates: end: 20130327
  2. GABAPENTIN [Concomitant]
  3. MAGNESIUM [Concomitant]
  4. ARCOXIA [Concomitant]

REACTIONS (7)
  - Rash [None]
  - Rash pustular [None]
  - Pruritus generalised [None]
  - Anaphylactic reaction [None]
  - Glucose tolerance impaired [None]
  - Urticaria [None]
  - Infusion related reaction [None]
